FAERS Safety Report 16744989 (Version 1)
Quarter: 2019Q3

REPORT INFORMATION
  Report Type: Report from Study
  Country: CA (occurrence: CA)
  Receive Date: 20190827
  Receipt Date: 20190827
  Transmission Date: 20191005
  Serious: Yes (Other)
  Sender: FDA-Public Use
  Company Number: CA-UCBSA-2019029489

PATIENT
  Age: 37 Year
  Sex: Female

DRUGS (2)
  1. CERTOLIZUMAB PEGOL [Suspect]
     Active Substance: CERTOLIZUMAB PEGOL
     Indication: RHEUMATOID ARTHRITIS
     Dosage: 400 MILLIGRAM, EV 2 WEEKS(QOW)
     Route: 058
     Dates: start: 20190618, end: 2019
  2. DEPO-MEDROL [Concomitant]
     Active Substance: METHYLPREDNISOLONE ACETATE
     Indication: PRODUCT USED FOR UNKNOWN INDICATION

REACTIONS (11)
  - Injection site bruising [Unknown]
  - Injection site swelling [Unknown]
  - Pneumonia [Not Recovered/Not Resolved]
  - Rheumatoid arthritis [Unknown]
  - Headache [Recovering/Resolving]
  - Erythema [Unknown]
  - Pruritus [Unknown]
  - Therapeutic response shortened [Unknown]
  - Injection site haemorrhage [Unknown]
  - Injection site discolouration [Unknown]
  - Chills [Recovering/Resolving]

NARRATIVE: CASE EVENT DATE: 2019
